FAERS Safety Report 5121586-8 (Version None)
Quarter: 2006Q4

REPORT INFORMATION
  Report Type: 
  Country: None (occurrence: None)
  Receive Date: 20061003
  Receipt Date: 20060926
  Transmission Date: 20070319
  Serious: Yes (Life-Threatening, Hospitalization)
  Sender: FDA-Public Use
  Company Number: 2006-145791-NL

PATIENT
  Age: 26 Year
  Sex: Female

DRUGS (2)
  1. CHORIONIC GONADOTROPIN [Suspect]
     Indication: OBESITY
     Dosage: 44 IU, NI
     Dates: start: 20060601, end: 20060713
  2. LEVONORGESTREL AND ETHINYL ESTRADIOL [Suspect]
     Dosage: 1 DF, NI
     Dates: start: 19970101

REACTIONS (1)
  - PULMONARY EMBOLISM [None]
